FAERS Safety Report 8251656-7 (Version None)
Quarter: 2012Q2

REPORT INFORMATION
  Report Type: 
  Country: None (occurrence: None)
  Receive Date: 20120402
  Receipt Date: 20120121
  Transmission Date: 20120825
  Serious: No
  Sender: FDA-Public Use
  Company Number: US-ABBOTT-12P-163-0898846-00

PATIENT
  Sex: Male
  Weight: 74.91 kg

DRUGS (2)
  1. ANDROGEL [Suspect]
     Indication: BLOOD TESTOSTERONE DECREASED
     Dosage: 1 PUMP PER DAY   1 PUMP PER DAY
     Dates: start: 20111201
  2. UNKNOWN MEDICATION [Concomitant]
     Indication: BLOOD PRESSURE

REACTIONS (3)
  - DRUG EFFECT DECREASED [None]
  - ASTHENIA [None]
  - INCORRECT DOSE ADMINISTERED [None]
